FAERS Safety Report 8859072 (Version 1)
Quarter: 2012Q4

REPORT INFORMATION
  Report Type: Spontaneous
  Country: US (occurrence: None)
  Receive Date: 20121024
  Receipt Date: 20121024
  Transmission Date: 20130627
  Serious: No
  Sender: FDA-Public Use
  Company Number: None

PATIENT
  Age: 22 Year
  Sex: Female

DRUGS (1)
  1. BUPROPION [Suspect]
     Dosage: 300 mg qd po
     Route: 048
     Dates: start: 20120914

REACTIONS (2)
  - Unevaluable event [None]
  - Product substitution issue [None]
